FAERS Safety Report 14671455 (Version 1)
Quarter: 2018Q1

REPORT INFORMATION
  Report Type: Spontaneous
  Country: US (occurrence: US)
  Receive Date: 20180323
  Receipt Date: 20180323
  Transmission Date: 20180509
  Serious: Yes (Hospitalization, Other)
  Sender: FDA-Public Use
  Company Number: US-ZYDUS-019347

PATIENT
  Age: 29 Year
  Sex: Male

DRUGS (4)
  1. BUDESONIDE. [Suspect]
     Active Substance: BUDESONIDE
     Indication: AUTOIMMUNE HEPATITIS
     Route: 065
  2. MERCAPTOPURINE/MERCAPTOPURINE ANHYDROUS [Suspect]
     Active Substance: MERCAPTOPURINE
     Indication: AUTOIMMUNE HEPATITIS
     Route: 065
  3. SIROLIMUS. [Suspect]
     Active Substance: SIROLIMUS
     Indication: AUTOIMMUNE HEPATITIS
     Route: 065
  4. MESALAZINE [Suspect]
     Active Substance: MESALAMINE
     Indication: COLITIS ULCERATIVE
     Route: 065

REACTIONS (20)
  - Platelet count decreased [Unknown]
  - Colitis [None]
  - Cellulitis [Recovered/Resolved]
  - Pyrexia [Recovered/Resolved]
  - Colitis ulcerative [None]
  - Peripheral swelling [Recovered/Resolved]
  - Platelet morphology abnormal [None]
  - Bone marrow failure [Unknown]
  - Epistaxis [Unknown]
  - Pain [None]
  - Nodule [None]
  - Gastric disorder [None]
  - Febrile neutropenia [Unknown]
  - Sinus tachycardia [Unknown]
  - Gastritis [None]
  - Anisocytosis [Unknown]
  - Pancytopenia [Recovered/Resolved]
  - Pain [Recovered/Resolved]
  - Haemorrhagic diathesis [Unknown]
  - White blood cell count decreased [Recovering/Resolving]
